FAERS Safety Report 24132274 (Version 3)
Quarter: 2024Q3

REPORT INFORMATION
  Report Type: Report from Study
  Country: CA (occurrence: CA)
  Receive Date: 20240724
  Receipt Date: 20240730
  Transmission Date: 20241017
  Serious: Yes (Other)
  Sender: TEVA
  Company Number: CA-TEVA-VS-3223470

PATIENT
  Age: 76 Year
  Sex: Female

DRUGS (2)
  1. AJOVY [Suspect]
     Active Substance: FREMANEZUMAB-VFRM
     Indication: Migraine
     Route: 058
     Dates: start: 20240710, end: 20240710
  2. AMITRIPTYLINE [Concomitant]
     Active Substance: AMITRIPTYLINE

REACTIONS (6)
  - Temporomandibular pain and dysfunction syndrome [Unknown]
  - Nausea [Not Recovered/Not Resolved]
  - Pain in extremity [Recovered/Resolved]
  - Pain in jaw [Unknown]
  - Product use issue [Unknown]
  - Headache [Unknown]

NARRATIVE: CASE EVENT DATE: 20240701
